FAERS Safety Report 15531440 (Version 2)
Quarter: 2018Q4

REPORT INFORMATION
  Report Type: Spontaneous
  Country: FR (occurrence: FR)
  Receive Date: 20181019
  Receipt Date: 20181106
  Transmission Date: 20190205
  Serious: Yes (Other)
  Sender: FDA-Public Use
  Company Number: FR-OCTA-GAM19018FR

PATIENT
  Age: 71 Year
  Sex: Male

DRUGS (1)
  1. OCTAGAM IMMUNE GLOBULIN (HUMAN) [Suspect]
     Active Substance: HUMAN IMMUNOGLOBULIN G
     Indication: CHRONIC INFLAMMATORY DEMYELINATING POLYRADICULONEUROPATHY
     Dosage: INFUSION PER DAY:DAY1-30 G; DAY2-40 G; DAY3,4-45G
     Route: 042
     Dates: start: 20181001, end: 20181004

REACTIONS (13)
  - Neutropenia [Unknown]
  - Lymphopenia [Unknown]
  - Tachycardia [Unknown]
  - Suspected transmission of an infectious agent via product [Unknown]
  - Diarrhoea [Unknown]
  - Transaminases increased [Unknown]
  - Enterococcal infection [Unknown]
  - Hypotension [Unknown]
  - Prothrombin time prolonged [Unknown]
  - Vomiting [Unknown]
  - Sepsis [Unknown]
  - Hyperleukocytosis [Unknown]
  - Pyrexia [Unknown]

NARRATIVE: CASE EVENT DATE: 20181004
